FAERS Safety Report 14655549 (Version 1)
Quarter: 2018Q1

REPORT INFORMATION
  Report Type: Spontaneous
  Country: US (occurrence: US)
  Receive Date: 20180319
  Receipt Date: 20180319
  Transmission Date: 20180509
  Serious: Yes (Hospitalization)
  Sender: FDA-Public Use
  Company Number: US-THE RITEDOSE CORPORATION-2018RIT000068

PATIENT

DRUGS (6)
  1. PEPTO-BISMOL [Concomitant]
     Active Substance: BISMUTH SUBSALICYLATE
  2. PREDNISONE. [Concomitant]
     Active Substance: PREDNISONE
     Dosage: 10 MG, UNK
  3. ALBUTEROL SULFATE INHALATION SOLUTION [Suspect]
     Active Substance: ALBUTEROL SULFATE
     Indication: EMPHYSEMA
  4. IPRATROPIUM BROMIDE INHALATION SOLUTION [Suspect]
     Active Substance: IPRATROPIUM BROMIDE
     Indication: CHRONIC OBSTRUCTIVE PULMONARY DISEASE
     Dosage: UNK
     Route: 055
  5. IPRATROPIUM BROMIDE INHALATION SOLUTION [Suspect]
     Active Substance: IPRATROPIUM BROMIDE
     Indication: EMPHYSEMA
  6. ALBUTEROL SULFATE INHALATION SOLUTION [Suspect]
     Active Substance: ALBUTEROL SULFATE
     Indication: CHRONIC OBSTRUCTIVE PULMONARY DISEASE
     Dosage: UNK
     Route: 055

REACTIONS (8)
  - Choking [Recovering/Resolving]
  - Chest pain [Not Recovered/Not Resolved]
  - Productive cough [Not Recovered/Not Resolved]
  - Dependence [Unknown]
  - Bronchitis [Recovering/Resolving]
  - Product use in unapproved indication [Unknown]
  - Rhinorrhoea [Not Recovered/Not Resolved]
  - Joint swelling [Recovering/Resolving]

NARRATIVE: CASE EVENT DATE: 201803
